FAERS Safety Report 5142352-3 (Version None)
Quarter: 2006Q4

REPORT INFORMATION
  Report Type: 
  Country: None (occurrence: None)
  Receive Date: 20061102
  Receipt Date: 20061031
  Transmission Date: 20070319
  Serious: Yes (Life-Threatening, Other)
  Sender: FDA-Public Use
  Company Number: US-GLAXOSMITHKLINE-A0625586A

PATIENT
  Age: 60 Year
  Sex: Female

DRUGS (4)
  1. LAMICTAL [Suspect]
     Indication: BIPOLAR DISORDER
     Dosage: 100MG PER DAY
     Route: 048
     Dates: start: 20060701, end: 20061020
  2. NEXIUM [Concomitant]
  3. VASOTEC [Concomitant]
  4. PROZAC [Concomitant]

REACTIONS (5)
  - BLOOD TEST ABNORMAL [None]
  - RASH [None]
  - RASH PUSTULAR [None]
  - SKIN EXFOLIATION [None]
  - STEVENS-JOHNSON SYNDROME [None]
